FAERS Safety Report 6782601-9 (Version None)
Quarter: 2010Q2

REPORT INFORMATION
  Report Type: 
  Country: None (occurrence: None)
  Receive Date: 20100621
  Receipt Date: 20100609
  Transmission Date: 20101027
  Serious: Yes (Disabling, Other)
  Sender: FDA-Public Use
  Company Number: BR-PFIZER INC-2010069343

PATIENT
  Age: 53 Year
  Sex: Female

DRUGS (5)
  1. CHAMPIX [Suspect]
     Indication: TOBACCO USER
     Dosage: UNK
     Route: 048
     Dates: start: 20080101
  2. CHAMPIX [Suspect]
     Dosage: 0.5 MG, 1X/DAY
     Route: 048
     Dates: start: 20100501, end: 20100503
  3. CHAMPIX [Suspect]
     Dosage: 0.5 MG, 2X/DAY, EVERY 12 HOURS
     Route: 048
     Dates: start: 20100504, end: 20100501
  4. CHAMPIX [Suspect]
     Dosage: 1 MG, 2X/DAY, EVERY 12 HOURS
     Route: 048
     Dates: start: 20100501, end: 20100602
  5. ACTIVELLE [Concomitant]
     Indication: MENOPAUSE
     Dosage: UNK
     Dates: start: 20060101

REACTIONS (3)
  - ASTHENIA [None]
  - DEPRESSION [None]
  - NEUROSIS [None]
